FAERS Safety Report 23149455 (Version 1)
Quarter: 2023Q4

REPORT INFORMATION
  Report Type: Report from Study
  Country: MX (occurrence: MX)
  Receive Date: 20231106
  Receipt Date: 20231106
  Transmission Date: 20240110
  Serious: Yes (Other)
  Sender: FDA-Public Use
  Company Number: MX-002147023-NVSC2023MX234274

PATIENT
  Sex: Female
  Weight: 70 kg

DRUGS (3)
  1. ENTRESTO [Suspect]
     Active Substance: SACUBITRIL\VALSARTAN
     Indication: Cardiac disorder
     Dosage: 1 DOSAGE FORM (50 MG), BID (STOPPED 15 DAYS LATER IN 2018)
     Route: 048
     Dates: start: 2018, end: 2018
  2. ENTRESTO [Suspect]
     Active Substance: SACUBITRIL\VALSARTAN
     Dosage: 0.5 DOSAGE FORM, BID (200MG)
     Route: 048
     Dates: start: 2018, end: 2022
  3. ENTRESTO [Suspect]
     Active Substance: SACUBITRIL\VALSARTAN
     Dosage: 1 DOSAGE FORM, BID (100 MG)
     Route: 048
     Dates: start: 2022

REACTIONS (14)
  - Cataract [Recovering/Resolving]
  - Lung induration [Unknown]
  - COVID-19 [Recovered/Resolved]
  - Weight decreased [Unknown]
  - Muscular weakness [Unknown]
  - Fall [Not Recovered/Not Resolved]
  - Gait disturbance [Recovering/Resolving]
  - Fatigue [Unknown]
  - Agitation [Recovering/Resolving]
  - Back pain [Recovering/Resolving]
  - Limb injury [Unknown]
  - Cough [Recovered/Resolved]
  - Insomnia [Unknown]
  - Wrong technique in product usage process [Recovered/Resolved]

NARRATIVE: CASE EVENT DATE: 20180101
